FAERS Safety Report 7743878-6 (Version None)
Quarter: 2011Q3

REPORT INFORMATION
  Report Type: 
  Country: None (occurrence: None)
  Receive Date: 20110912
  Receipt Date: 20110831
  Transmission Date: 20111222
  Serious: Yes (Congenital Anomaly, Other)
  Sender: FDA-Public Use
  Company Number: US-VIIV HEALTHCARE LIMITED-A0942314A

PATIENT
  Sex: Male
  Weight: 0.6 kg

DRUGS (2)
  1. COMBIVIR [Suspect]
     Indication: ANTIRETROVIRAL THERAPY
     Dosage: 2TAB PER DAY
     Route: 064
     Dates: start: 20110413
  2. KALETRA [Suspect]
     Indication: ANTIRETROVIRAL THERAPY
     Dosage: 4TAB PER DAY
     Route: 064
     Dates: start: 20110413

REACTIONS (9)
  - EXOMPHALOS [None]
  - DYSMORPHISM [None]
  - STILLBIRTH [None]
  - MATERNAL EXPOSURE DURING PREGNANCY [None]
  - MATERNAL DRUGS AFFECTING FOETUS [None]
  - LOW SET EARS [None]
  - FOETAL GROWTH RESTRICTION [None]
  - CAUDAL REGRESSION SYNDROME [None]
  - LIMB MALFORMATION [None]
